FAERS Safety Report 4309527-4 (Version None)
Quarter: 2004Q1

REPORT INFORMATION
  Report Type: 
  Country: None (occurrence: None)
  Receive Date: 20040301
  Receipt Date: 20040221
  Transmission Date: 20041129
  Serious: Yes (Other)
  Sender: FDA-Public Use
  Company Number: 2004-02-1727

PATIENT
  Sex: Female

DRUGS (3)
  1. PEG-INTRON [Suspect]
     Indication: HEPATITIS C
     Dosage: 16 MCG SUBCUTANEOUS
     Route: 058
     Dates: start: 20021119
  2. REBETOL [Suspect]
     Indication: HEPATITIS C
     Dosage: 400 MCG ORAL
     Route: 048
     Dates: start: 20021119
  3. EFFEXOR [Concomitant]

REACTIONS (1)
  - BREAST CANCER [None]
